FAERS Safety Report 20056315 (Version 2)
Quarter: 2021Q4

REPORT INFORMATION
  Report Type: Spontaneous
  Country: JP (occurrence: JP)
  Receive Date: 20211111
  Receipt Date: 20211214
  Transmission Date: 20220303
  Serious: No
  Sender: FDA-Public Use
  Company Number: JP-ABBVIE-21K-087-4119898-00

PATIENT
  Age: 77 Year
  Sex: Male

DRUGS (5)
  1. SKYRIZI [Suspect]
     Active Substance: RISANKIZUMAB-RZAA
     Indication: Psoriasis
     Route: 058
  2. RABEPRAZOLE SODIUM [Concomitant]
     Active Substance: RABEPRAZOLE SODIUM
     Indication: Product used for unknown indication
  3. FEBUXOSTAT [Concomitant]
     Active Substance: FEBUXOSTAT
     Indication: Product used for unknown indication
  4. ELDECALCITOL [Concomitant]
     Active Substance: ELDECALCITOL
     Indication: Product used for unknown indication
  5. ETRETINATE [Concomitant]
     Active Substance: ETRETINATE
     Indication: Product used for unknown indication

REACTIONS (4)
  - Tendonitis [Unknown]
  - Psoriatic arthropathy [Recovering/Resolving]
  - Groin pain [Unknown]
  - Infection [Unknown]

NARRATIVE: CASE EVENT DATE: 20210201
